FAERS Safety Report 4728643-6 (Version None)
Quarter: 2005Q3

REPORT INFORMATION
  Report Type: 
  Country: None (occurrence: None)
  Receive Date: 20050727
  Receipt Date: 20050713
  Transmission Date: 20060218
  Serious: Yes (Hospitalization, Other)
  Sender: FDA-Public Use
  Company Number: US-SHR-04-020102

PATIENT
  Age: 37 Year
  Sex: Female
  Weight: 49.4 kg

DRUGS (5)
  1. BETASERON [Suspect]
     Indication: MULTIPLE SCLEROSIS
     Dosage: 8 MIU, EVERY 2D, SUBCUTANEOUS
     Route: 058
     Dates: start: 20010723
  2. CELEXA [Concomitant]
  3. WELLBUTRIN [Concomitant]
  4. CALCIUM (CALCIUM) [Concomitant]
  5. MULTIVITAMINS (RETINOL, PANTHENOL) [Concomitant]

REACTIONS (3)
  - INFLUENZA LIKE ILLNESS [None]
  - PAPILLARY THYROID CANCER [None]
  - POST PROCEDURAL COMPLICATION [None]
